FAERS Safety Report 10691371 (Version 1)
Quarter: 2015Q1

REPORT INFORMATION
  Report Type: Spontaneous
  Country: HR (occurrence: HR)
  Receive Date: 20150105
  Receipt Date: 20150105
  Transmission Date: 20150720
  Serious: Yes (Hospitalization)
  Sender: FDA-Public Use
  Company Number: HR-ACTAVIS-2014-28090

PATIENT
  Age: 72 Year
  Sex: Female
  Weight: 47 kg

DRUGS (2)
  1. CARBOPLATIN PFIZER [Suspect]
     Active Substance: CARBOPLATIN
     Indication: PRODUCT USED FOR UNKNOWN INDICATION
     Dosage: 200 DF, DAILY
     Route: 042
     Dates: start: 20141111, end: 20141111
  2. SINDAXEL [Suspect]
     Active Substance: PACLITAXEL
     Indication: PRODUCT USED FOR UNKNOWN INDICATION
     Dosage: 200 DF, DAILY
     Route: 042
     Dates: start: 20141111, end: 20141111

REACTIONS (3)
  - Febrile neutropenia [Recovered/Resolved]
  - Epistaxis [Recovered/Resolved]
  - Anaemia [Recovered/Resolved]

NARRATIVE: CASE EVENT DATE: 20141118
